FAERS Safety Report 4713853-4 (Version None)
Quarter: 2005Q3

REPORT INFORMATION
  Report Type: 
  Country: None (occurrence: None)
  Receive Date: 20050712
  Receipt Date: 20050629
  Transmission Date: 20060218
  Serious: Yes (Hospitalization, Other)
  Sender: FDA-Public Use
  Company Number: 2005094315

PATIENT
  Sex: Female
  Weight: 55.3388 kg

DRUGS (3)
  1. DETROL LA [Suspect]
     Indication: MICTURITION URGENCY
     Dosage: 2 MG (2 MG, 1 IN 1 D),
     Dates: start: 20000101
  2. DETROL LA [Suspect]
     Indication: STRESS INCONTINENCE
     Dosage: 2 MG (2 MG, 1 IN 1 D),
     Dates: start: 20000101
  3. MONOPRIL [Concomitant]

REACTIONS (7)
  - BLADDER DISORDER [None]
  - DIVERTICULITIS [None]
  - DRUG INEFFECTIVE [None]
  - GASTROOESOPHAGEAL REFLUX DISEASE [None]
  - HERNIA [None]
  - IATROGENIC INJURY [None]
  - RECTOCELE [None]
